FAERS Safety Report 7397427-5 (Version None)
Quarter: 2011Q2

REPORT INFORMATION
  Report Type: 
  Country: None (occurrence: None)
  Receive Date: 20110406
  Receipt Date: 20110323
  Transmission Date: 20111010
  Serious: Yes (Other)
  Sender: FDA-Public Use
  Company Number: JP-BAYER-201015560BYL

PATIENT
  Age: 63 Year
  Sex: Male

DRUGS (4)
  1. LAC B [Concomitant]
     Indication: PROPHYLAXIS
     Dosage: DAILY DOSE 3 G
     Route: 048
     Dates: start: 20100811
  2. KERATINAMIN [Concomitant]
     Indication: PROPHYLAXIS
     Dosage: UNK
     Route: 061
     Dates: start: 20100811
  3. NEXAVAR [Suspect]
     Indication: HEPATIC NEOPLASM MALIGNANT
     Dosage: 400 MG, QD
     Route: 048
     Dates: start: 20100810, end: 20100917
  4. NEXAVAR [Suspect]
     Dosage: 400 MG, QD
     Dates: start: 20101015, end: 20101022

REACTIONS (5)
  - PYREXIA [None]
  - DEHYDRATION [None]
  - ALTERED STATE OF CONSCIOUSNESS [None]
  - EATING DISORDER [None]
  - HEPATIC ENCEPHALOPATHY [None]
